FAERS Safety Report 17811930 (Version 5)
Quarter: 2020Q4

REPORT INFORMATION
  Report Type: Report from Study
  Country: US (occurrence: US)
  Receive Date: 20200521
  Receipt Date: 20201123
  Transmission Date: 20210113
  Serious: No
  Sender: FDA-Public Use
  Company Number: NVSC2020US137784

PATIENT
  Sex: Female

DRUGS (2)
  1. COSENTYX [Suspect]
     Active Substance: SECUKINUMAB
     Dosage: UNK
     Route: 058
     Dates: start: 20200518
  2. COSENTYX [Suspect]
     Active Substance: SECUKINUMAB
     Indication: PSORIATIC ARTHROPATHY
     Dosage: UNK, QW, FOR 5 WEEKS AND THEN EVERY 4 WEEKS
     Route: 058
     Dates: start: 202004

REACTIONS (7)
  - Periorbital swelling [Unknown]
  - Lethargy [Unknown]
  - Nasopharyngitis [Unknown]
  - Malaise [Unknown]
  - Psoriasis [Recovering/Resolving]
  - Oropharyngeal pain [Unknown]
  - Fatigue [Unknown]
